FAERS Safety Report 14985480 (Version 1)
Quarter: 2018Q2

REPORT INFORMATION
  Report Type: Spontaneous
  Country: HU (occurrence: HU)
  Receive Date: 20180607
  Receipt Date: 20180607
  Transmission Date: 20180711
  Serious: Yes (Hospitalization)
  Sender: FDA-Public Use
  Company Number: HU-TEVA-2018-HU-901298

PATIENT
  Age: 53 Year
  Sex: Female

DRUGS (1)
  1. PLATIDAM 0.5 MG/MG CONCENTRATE FOR SOLUTON INFUSION [Suspect]
     Active Substance: CISPLATIN
     Indication: CERVIX CARCINOMA
     Dosage: 5 CYCLES
     Route: 042
     Dates: start: 20180326

REACTIONS (10)
  - Deep vein thrombosis [Recovered/Resolved]
  - Hot flush [Not Recovered/Not Resolved]
  - Muscle spasms [Recovering/Resolving]
  - Yellow skin [None]
  - Renal colic [Unknown]
  - Chills [Not Recovered/Not Resolved]
  - Skin discolouration [Unknown]
  - Gastrointestinal disorder [Not Recovered/Not Resolved]
  - Pain in extremity [Unknown]
  - Hiccups [Recovering/Resolving]

NARRATIVE: CASE EVENT DATE: 2018
